FAERS Safety Report 8499622-0 (Version None)
Quarter: 2012Q3

REPORT INFORMATION
  Report Type: 
  Country: None (occurrence: None)
  Receive Date: 20120710
  Receipt Date: 20120627
  Transmission Date: 20120928
  Serious: Yes (Life-Threatening)
  Sender: FDA-Public Use
  Company Number: JP-ASTELLAS-2012US004705

PATIENT
  Sex: Female

DRUGS (19)
  1. VANCOMYCIN HYDROCHLORIDE [Suspect]
     Dosage: 0.5 MG, UID/QD
     Route: 065
     Dates: start: 20120309, end: 20120409
  2. LENDORMIN [Suspect]
     Indication: INSOMNIA
     Dosage: 0.25 MG, UID/QD
     Route: 065
     Dates: start: 20120421
  3. MEROPENEM [Suspect]
     Indication: MENINGITIS BACTERIAL
     Dosage: 0.5 G, UID/QD
     Route: 042
     Dates: start: 20120117, end: 20120216
  4. BUPRENORPHINE HCL [Suspect]
     Indication: PRODUCT USED FOR UNKNOWN INDICATION
     Dosage: UNK
     Route: 065
  5. VANCOMYCIN HYDROCHLORIDE [Suspect]
     Indication: PRODUCT USED FOR UNKNOWN INDICATION
     Dosage: 0.5 MG, UID/QD
     Route: 065
     Dates: start: 20120206, end: 20120215
  6. LANSOPRAZOLE [Suspect]
     Indication: GASTRIC ULCER
     Dosage: UNK
     Route: 065
     Dates: start: 20120321, end: 20120507
  7. PRODIF [Suspect]
     Indication: PRODUCT USED FOR UNKNOWN INDICATION
     Dosage: UNK
     Route: 042
  8. CLINDAMYCIN PHOSPHATE [Suspect]
     Indication: PRODUCT USED FOR UNKNOWN INDICATION
     Dosage: 240 MG, UID/QD
     Route: 065
     Dates: start: 20120411, end: 20120506
  9. ALFAROL [Suspect]
     Indication: OSTEOPOROSIS
     Dosage: 0.5 UNK, UID/QD
     Route: 065
     Dates: start: 20120419, end: 20120507
  10. AMBISOME [Suspect]
     Indication: FUNGAL INFECTION
  11. ACETAMINOPHEN [Suspect]
     Indication: ANTIPYRESIS
     Dosage: UNK
     Route: 065
     Dates: start: 20120101, end: 20120507
  12. ALBUMIN TANNATE [Suspect]
     Indication: PROPHYLAXIS AGAINST DIARRHOEA
     Dosage: 1 G, UID/QD
     Route: 065
     Dates: start: 20120427, end: 20120507
  13. BIOFERMIN                          /00275501/ [Suspect]
     Indication: PROPHYLAXIS AGAINST DIARRHOEA
     Dosage: 3 G, UID/QD
     Route: 065
     Dates: start: 20120419, end: 20120507
  14. MEROPENEM [Suspect]
     Indication: PSOAS ABSCESS
     Dosage: 1 G, UID/QD
     Route: 042
     Dates: start: 20120411, end: 20120420
  15. MEROPENEM [Suspect]
     Dosage: 2 G, UID/QD
     Route: 042
     Dates: start: 20120427, end: 20120506
  16. VANCOMYCIN HYDROCHLORIDE [Suspect]
     Dosage: UNK
     Route: 065
     Dates: start: 20120427
  17. AMBISOME [Suspect]
     Indication: DEVICE RELATED INFECTION
     Dosage: 100 MG, UID/QD
     Route: 042
     Dates: start: 20120425, end: 20120504
  18. ACETAMINOPHEN [Suspect]
     Indication: ANALGESIC THERAPY
  19. VALPROIC ACID [Suspect]
     Indication: CONVULSION
     Dosage: 400 MG, UID/QD
     Route: 065
     Dates: start: 20120413, end: 20120507

REACTIONS (1)
  - TOXIC EPIDERMAL NECROLYSIS [None]
